FAERS Safety Report 13813307 (Version 1)
Quarter: 2017Q3

REPORT INFORMATION
  Report Type: Spontaneous
  Country: JP (occurrence: JP)
  Receive Date: 20170729
  Receipt Date: 20170729
  Transmission Date: 20171127
  Serious: Yes (Other)
  Sender: FDA-Public Use
  Company Number: JP-MYLANLABS-2017M1045625

PATIENT

DRUGS (5)
  1. LEVOTHYROXINE SODIUM. [Concomitant]
     Active Substance: LEVOTHYROXINE SODIUM
     Indication: HYPOPITUITARISM
     Dosage: 50 MICROG/DAY
     Route: 065
  2. VASOPRESSIN. [Concomitant]
     Active Substance: VASOPRESSIN
     Indication: DIABETES INSIPIDUS
     Dosage: 5 MICROG IN THE MORNING AND 7.5 MICROG IN THE EVENING
     Route: 045
  3. OCTREOTIDE. [Suspect]
     Active Substance: OCTREOTIDE
     Dosage: 100 MICROG
     Route: 058
  4. HYDROCORTISONE. [Concomitant]
     Active Substance: HYDROCORTISONE
     Indication: HYPOPITUITARISM
     Dosage: 15 MG IN THE MORNING AND 5 MG IN THE EVENING
     Route: 048
  5. OCTREOTIDE. [Suspect]
     Active Substance: OCTREOTIDE
     Indication: PITUITARY TUMOUR
     Dosage: 20 MG/MONTH
     Route: 065

REACTIONS (3)
  - Diabetes insipidus [Recovering/Resolving]
  - Diabetic ketoacidosis [Recovering/Resolving]
  - Diabetes mellitus [Recovering/Resolving]
